FAERS Safety Report 8824612 (Version 1)
Quarter: 2012Q4

REPORT INFORMATION
  Report Type: 
  Country: US (occurrence: US)
  Receive Date: 20121004
  Receipt Date: 20121004
  Transmission Date: 20130627
  Serious: Yes (Hospitalization)
  Sender: FDA-Public Use
  Company Number: US-NOVOPROD-361149

PATIENT
  Sex: Male

DRUGS (2)
  1. NOVOLOG FLEXPEN [Suspect]
     Indication: DIABETES MELLITUS
     Dosage: Unknown
     Route: 058
  2. LANTUS [Suspect]
     Indication: DIABETES MELLITUS
     Dosage: 10 IU, qd
     Route: 058

REACTIONS (1)
  - Cardiac failure congestive [Unknown]
